FAERS Safety Report 19090601 (Version 1)
Quarter: 2021Q2

REPORT INFORMATION
  Report Type: Spontaneous
  Country: NL (occurrence: NL)
  Receive Date: 20210405
  Receipt Date: 20210405
  Transmission Date: 20210717
  Serious: Yes (Other)
  Sender: FDA-Public Use
  Company Number: NL-ORGANON-O2103NLD003114

PATIENT
  Sex: Male
  Weight: 70 kg

DRUGS (11)
  1. PREGABALINE [Concomitant]
     Active Substance: PREGABALIN
     Dosage: UNK
  2. ALENDRONATE SODIUM\CHOLECALCIFEROL [Suspect]
     Active Substance: ALENDRONATE SODIUM\CHOLECALCIFEROL
     Indication: PRODUCT USED FOR UNKNOWN INDICATION
     Dosage: 70 MILLIGRAM, QW, 1X PER WEEK 1 TABLET
     Dates: start: 201112
  3. FOSTER [Concomitant]
     Active Substance: BECLOMETHASONE\FORMOTEROL
     Dosage: FOSTER AEROSOL 100/6MICROGRAMS/DOSE SPRAYCAN 180 DOSES
  4. GREPID [Concomitant]
     Active Substance: CLOPIDOGREL BESILATE
     Dosage: UNK
  5. PARACETAMOL [Concomitant]
     Active Substance: ACETAMINOPHEN
     Dosage: UNK
  6. CARBOMER [Concomitant]
     Active Substance: CARBOMER
     Dosage: CARBOMER GEL 10MG/G / CARBOMERWATERGEL 1%
  7. ACICLOVIR [Concomitant]
     Active Substance: ACYCLOVIR
     Dosage: CONCENTRATION: 30MG/G
  8. SPIRIVA RESPIMAT [Concomitant]
     Active Substance: TIOTROPIUM BROMIDE
     Dosage: INHALATION SOLUTION 2.5 MICROGRAM/DOSE CARTRIDGE 60 DOSES + INHALATOR
  9. PALEXIA [Concomitant]
     Active Substance: TAPENTADOL HYDROCHLORIDE
     Dosage: UNK
  10. TACAL D3 [Concomitant]
     Dosage: TACAL D3 CHEWTABLET 500MG/800 IU ORANGE
  11. PREDNISOLON [PREDNISOLONE] [Concomitant]
     Active Substance: PREDNISOLONE
     Dosage: UNK

REACTIONS (1)
  - Complication associated with device [Not Recovered/Not Resolved]
